FAERS Safety Report 7048481-1 (Version None)
Quarter: 2010Q4

REPORT INFORMATION
  Report Type: 
  Country: None (occurrence: None)
  Receive Date: 20101015
  Receipt Date: 20101015
  Transmission Date: 20110411
  Serious: Yes (Hospitalization)
  Sender: FDA-Public Use
  Company Number: None

PATIENT
  Sex: Male
  Weight: 82.4 kg

DRUGS (2)
  1. CISPLATIN [Suspect]
     Dosage: 49 MG
     Dates: end: 20100928
  2. TAXOL [Suspect]
     Dosage: 99 MG
     Dates: end: 20100928

REACTIONS (5)
  - DIARRHOEA [None]
  - DYSPHAGIA [None]
  - NAUSEA [None]
  - OESOPHAGEAL PAIN [None]
  - VOMITING [None]
